FAERS Safety Report 9552704 (Version 1)
Quarter: 2013Q3

REPORT INFORMATION
  Report Type: Spontaneous
  Country: US (occurrence: None)
  Receive Date: 20130924
  Receipt Date: 20130924
  Transmission Date: 20140515
  Serious: Yes (Hospitalization)
  Sender: FDA-Public Use
  Company Number: None

PATIENT
  Age: 67 Year
  Sex: Male
  Weight: 162.7 kg

DRUGS (1)
  1. LORAZEPAM [Suspect]
     Indication: AGITATION
     Route: 048
     Dates: start: 20130716, end: 20130717

REACTIONS (4)
  - Tachypnoea [None]
  - Hypopnoea [None]
  - Respiratory failure [None]
  - Hypercapnia [None]
